FAERS Safety Report 10654328 (Version 2)
Quarter: 2015Q1

REPORT INFORMATION
  Report Type: Spontaneous
  Country: US (occurrence: US)
  Receive Date: 20141216
  Receipt Date: 20150219
  Transmission Date: 20150720
  Serious: No
  Sender: FDA-Public Use
  Company Number: US-ASTRAZENECA-2014SE86077

PATIENT
  Age: 64 Year
  Sex: Male
  Weight: 118.4 kg

DRUGS (8)
  1. METFORMIN [Concomitant]
     Active Substance: METFORMIN HYDROCHLORIDE
     Route: 048
  2. LEVOTHYROXINE [Concomitant]
     Active Substance: LEVOTHYROXINE
     Route: 048
  3. ECOTRIM [Concomitant]
     Indication: MYOCARDIAL INFARCTION
     Route: 048
  4. PULMICORT FLEXHALER [Suspect]
     Active Substance: BUDESONIDE
     Indication: ASTHMA
     Dosage: 180 MCG, ONE INHALATION ONCE A DAY BETWEEN 2 TO 4 PM
     Route: 055
     Dates: start: 2014
  5. ALBUTEROL SULFATE TABLET [Concomitant]
     Indication: ASTHMA
     Route: 048
     Dates: start: 2014
  6. FENOFIBRATE. [Concomitant]
     Active Substance: FENOFIBRATE
     Route: 048
  7. B1 [Concomitant]
     Route: 048
  8. ISOSORBIDE MONOTRATE [Concomitant]
     Route: 048

REACTIONS (4)
  - Productive cough [Not Recovered/Not Resolved]
  - Off label use [Unknown]
  - Weight increased [Not Recovered/Not Resolved]
  - Circumstance or information capable of leading to medication error [Unknown]

NARRATIVE: CASE EVENT DATE: 2014
